FAERS Safety Report 7125087-7 (Version None)
Quarter: 2010Q4

REPORT INFORMATION
  Report Type: 
  Country: None (occurrence: None)
  Receive Date: 20101129
  Receipt Date: 20101018
  Transmission Date: 20110411
  Serious: Yes (Other)
  Sender: FDA-Public Use
  Company Number: JP-AMGEN-JPNSP2010001221

PATIENT

DRUGS (2)
  1. FILGRASTIM [Suspect]
     Indication: BLOOD STEM CELL HARVEST
     Dosage: 375 A?G, UNK
  2. FILGRASTIM [Suspect]
     Dosage: 375 A?G, BID
     Route: 058

REACTIONS (2)
  - FATIGUE [None]
  - IGA NEPHROPATHY [None]
